FAERS Safety Report 16600416 (Version 1)
Quarter: 2019Q3

REPORT INFORMATION
  Report Type: Spontaneous
  Country: FR (occurrence: FR)
  Receive Date: 20190719
  Receipt Date: 20190719
  Transmission Date: 20191004
  Serious: Yes (Other)
  Sender: FDA-Public Use
  Company Number: FR-TEVA-2019-FR-1079015

PATIENT
  Age: 79 Year
  Sex: Male

DRUGS (8)
  1. PRAVASTATINE ARROW GENERIQUES 20 MG, COMPRIM? S?CABLE [Concomitant]
     Dosage: 1DOSAGE FORM PER DAY
     Route: 048
  2. PERINDOPRIL ARROW 2 MG COMPRIME [Concomitant]
     Active Substance: PERINDOPRIL ERBUMINE
     Dosage: 1DOSAGE FORM PER DAY
     Route: 048
  3. LANSOPRAZOLE MYLAN 30 MG, COMPRIM? ORODISPERSIBLE [Concomitant]
     Active Substance: LANSOPRAZOLE
     Dosage: 1DOSAGE FORM PER DAY
     Route: 048
  4. KARDEGIC [Concomitant]
     Active Substance: ASPIRIN DL-LYSINE
     Dosage: 1DOSAGE FORM PER DAY
     Route: 048
  5. TOVIAZ [Concomitant]
     Active Substance: FESOTERODINE FUMARATE
     Dosage: 1DOSAGE FORM PER DAY
     Route: 048
  6. DUPHALAC, SOLUTION BUVABLE EN SACHET DOSE [Concomitant]
     Dosage: 2DOSAGE FORM PER DAY
     Route: 048
  7. COPAXONE [Suspect]
     Active Substance: GLATIRAMER ACETATE
     Indication: PROGRESSIVE MULTIPLE SCLEROSIS
     Dosage: 1DOSAGE FORM PER DAY
     Route: 058
     Dates: start: 20110917
  8. MONO TILDIEM [Concomitant]
     Active Substance: DILTIAZEM HYDROCHLORIDE
     Dosage: 1DOSAGE FORM PER DAY
     Route: 048

REACTIONS (1)
  - Erysipelas [Recovered/Resolved]

NARRATIVE: CASE EVENT DATE: 20180926
